FAERS Safety Report 11358639 (Version 1)
Quarter: 2015Q3

REPORT INFORMATION
  Report Type: Spontaneous
  Country: US (occurrence: US)
  Receive Date: 20150803
  Receipt Date: 20150803
  Transmission Date: 20151125
  Serious: No
  Sender: FDA-Public Use
  Company Number: US-ELI_LILLY_AND_COMPANY-US200902000107

PATIENT
  Sex: Female

DRUGS (7)
  1. PROZAC [Concomitant]
     Active Substance: FLUOXETINE HYDROCHLORIDE
     Dosage: 20 MG, UNK
  2. LORAZEPAM. [Concomitant]
     Active Substance: LORAZEPAM
  3. COGENTIN [Concomitant]
     Active Substance: BENZTROPINE MESYLATE
  4. NEURONTIN [Concomitant]
     Active Substance: GABAPENTIN
  5. HALDOL [Concomitant]
     Active Substance: HALOPERIDOL
  6. ZYPREXA [Suspect]
     Active Substance: OLANZAPINE
     Dosage: 15 MG, DAILY (1/D)
     Dates: start: 2005, end: 2008
  7. TRAZODONE [Concomitant]
     Active Substance: TRAZODONE HYDROCHLORIDE
     Dosage: 100 MG, UNK

REACTIONS (2)
  - Hepatic enzyme increased [Unknown]
  - Tongue disorder [Unknown]
